FAERS Safety Report 7252535-4 (Version None)
Quarter: 2011Q1

REPORT INFORMATION
  Report Type: 
  Country: None (occurrence: None)
  Receive Date: 20110129
  Receipt Date: 20100304
  Transmission Date: 20110831
  Serious: No
  Sender: FDA-Public Use
  Company Number: US-ABBOTT-09P-163-0585828-00

PATIENT
  Sex: Male
  Weight: 102.15 kg

DRUGS (7)
  1. HUMIRA [Suspect]
     Indication: RHEUMATOID ARTHRITIS
     Route: 058
     Dates: start: 20060101
  2. PREDNISONE [Concomitant]
     Indication: RHEUMATOID ARTHRITIS
     Dates: start: 20080101, end: 20100101
  3. PREDNISONE [Concomitant]
     Dates: start: 20100101
  4. METHOTREXATE [Concomitant]
     Indication: RHEUMATOID ARTHRITIS
     Dates: start: 20080101
  5. LISINOPRIL [Concomitant]
     Indication: BLOOD PRESSURE
  6. PRAVASTATIN [Concomitant]
     Indication: BLOOD CHOLESTEROL
  7. ASPIRIN [Concomitant]
     Indication: PRODUCT USED FOR UNKNOWN INDICATION

REACTIONS (4)
  - MOBILITY DECREASED [None]
  - PAIN IN EXTREMITY [None]
  - JOINT STIFFNESS [None]
  - PAIN [None]
